FAERS Safety Report 14390451 (Version 1)
Quarter: 2018Q1

REPORT INFORMATION
  Report Type: Spontaneous
  Country: US (occurrence: US)
  Receive Date: 20180116
  Receipt Date: 20180116
  Transmission Date: 20180509
  Serious: Yes (Hospitalization, Other)
  Sender: FDA-Public Use
  Company Number: US-RECORDATI RARE DISEASES-US-R13005-18-00003

PATIENT
  Age: 30 Year
  Sex: Male

DRUGS (1)
  1. METHAMPHETAMINE [Suspect]
     Active Substance: METHAMPHETAMINE
     Indication: PRODUCT USED FOR UNKNOWN INDICATION
     Route: 065

REACTIONS (6)
  - Head injury [Recovered/Resolved]
  - Speech disorder [Recovered/Resolved]
  - Joint injury [Recovered/Resolved]
  - Somnolence [Recovered/Resolved]
  - Intentional self-injury [Recovered/Resolved]
  - Confusional state [Recovered/Resolved]
